FAERS Safety Report 8285684 (Version 5)
Quarter: 2012Q4

REPORT INFORMATION
  Report Type: Report from Study
  Country: DE (occurrence: DE)
  Receive Date: 20111213
  Receipt Date: 20121210
  Transmission Date: 20130627
  Serious: Yes (Hospitalization)
  Sender: FDA-Public Use
  Company Number: DE-JNJFOC-20111201763

PATIENT
  Age: 10 Year
  Sex: Male
  Weight: 33 kg

DRUGS (6)
  1. REMICADE [Suspect]
     Indication: CROHN^S DISEASE
     Route: 042
     Dates: start: 20080320
  2. AZATHIOPRINE [Concomitant]
     Indication: PRODUCT USED FOR UNKNOWN INDICATION
  3. DESLORATADINE [Concomitant]
     Indication: PRODUCT USED FOR UNKNOWN INDICATION
  4. VIANI FORTE [Concomitant]
     Indication: PRODUCT USED FOR UNKNOWN INDICATION
  5. RIMEXOLONE [Concomitant]
     Indication: PRODUCT USED FOR UNKNOWN INDICATION
  6. FLUTICASONE AND SALMETEROL [Concomitant]
     Indication: PRODUCT USED FOR UNKNOWN INDICATION

REACTIONS (2)
  - Social problem [Recovered/Resolved with Sequelae]
  - Encopresis [None]
